FAERS Safety Report 4874756-8 (Version None)
Quarter: 2006Q1

REPORT INFORMATION
  Report Type: 
  Country: None (occurrence: None)
  Receive Date: 20060105
  Receipt Date: 20060105
  Transmission Date: 20060701
  Serious: Yes (Hospitalization)
  Sender: FDA-Public Use
  Company Number: None

PATIENT
  Sex: Female
  Weight: 74.4 kg

DRUGS (1)
  1. ETANERCEEPT [Suspect]
     Indication: PSORIASIS
     Dosage: 50 MG WEEKLY SQ
     Route: 058

REACTIONS (3)
  - PAIN [None]
  - PYREXIA [None]
  - VOMITING [None]
